FAERS Safety Report 5997256-0 (Version None)
Quarter: 2008Q4

REPORT INFORMATION
  Report Type: 
  Country: None (occurrence: None)
  Receive Date: 20081212
  Receipt Date: 20081117
  Transmission Date: 20090506
  Serious: No
  Sender: FDA-Public Use
  Company Number: US-ABBOTT-08P-163-0486506-00

PATIENT
  Sex: Male
  Weight: 70.37 kg

DRUGS (4)
  1. HUMIRA [Suspect]
     Indication: ANKYLOSING SPONDYLITIS
     Route: 050
     Dates: start: 20070401, end: 20080301
  2. CELECOXIB [Concomitant]
     Indication: INFLAMMATION
     Route: 048
  3. TRAMADOL HCL [Concomitant]
     Indication: PAIN
     Route: 050
  4. VICODIN [Concomitant]
     Indication: PAIN
     Route: 048

REACTIONS (2)
  - ANKYLOSING SPONDYLITIS [None]
  - PAIN [None]
